FAERS Safety Report 5891788-1 (Version None)
Quarter: 2008Q3

REPORT INFORMATION
  Report Type: 
  Country: None (occurrence: None)
  Receive Date: 20080922
  Receipt Date: 20080911
  Transmission Date: 20090109
  Serious: Yes (Death, Hospitalization)
  Sender: FDA-Public Use
  Company Number: AT-ELI_LILLY_AND_COMPANY-AT200809002525

PATIENT
  Age: 35 Year
  Sex: Male
  Weight: 100 kg

DRUGS (5)
  1. ZYPREXA [Suspect]
     Indication: DELUSIONAL DISORDER, UNSPECIFIED TYPE
     Dosage: 15 MG, EACH EVENING
     Route: 048
     Dates: start: 20080528
  2. ABILIFY [Concomitant]
     Indication: DELUSIONAL DISORDER, UNSPECIFIED TYPE
     Dosage: 30 MG, EACH MORNING
     Route: 048
     Dates: start: 20080528
  3. MIRTAZAPINE [Concomitant]
     Indication: OBSESSIVE-COMPULSIVE DISORDER
     Dosage: 30 MG, DAILY (1/D)
     Route: 048
     Dates: start: 20080513
  4. SEROXAT [Concomitant]
     Indication: OBSESSIVE-COMPULSIVE DISORDER
     Dosage: 40 MG, DAILY (1/D)
     Route: 048
     Dates: start: 20080101
  5. LEXOTANIL [Concomitant]
     Indication: OBSESSIVE-COMPULSIVE DISORDER
     Dosage: 1.5 MG, DAILY (1/D)
     Route: 048
     Dates: start: 20080708

REACTIONS (6)
  - CONFUSIONAL STATE [None]
  - DIABETIC COMA [None]
  - DISORIENTATION [None]
  - DIZZINESS [None]
  - PYREXIA [None]
  - SOMNOLENCE [None]
